FAERS Safety Report 4341906-1 (Version None)
Quarter: 2004Q2

REPORT INFORMATION
  Report Type: 
  Country: None (occurrence: None)
  Receive Date: 20040420
  Receipt Date: 20040408
  Transmission Date: 20050107
  Serious: Yes (Other)
  Sender: FDA-Public Use
  Company Number: GB-BRISTOL-MYERS SQUIBB COMPANY-12565230

PATIENT
  Age: 77 Year
  Sex: Female

DRUGS (6)
  1. CYCLOPHOSPHAMIDE [Suspect]
     Dates: start: 20040201
  2. METHOTREXATE [Suspect]
     Route: 037
     Dates: start: 20040201
  3. DAUNORUBICIN [Suspect]
     Dates: start: 20040101
  4. VINCRISTINE [Suspect]
     Dates: start: 20040101
  5. CYTARABINE [Suspect]
     Dates: start: 20040301
  6. ASPARAGINASE [Suspect]
     Dates: start: 20040201

REACTIONS (1)
  - CEREBROVASCULAR ACCIDENT [None]
